FAERS Safety Report 8939349 (Version 2)
Quarter: 2012Q4

REPORT INFORMATION
  Report Type: Report from Study
  Country: CA (occurrence: CA)
  Receive Date: 20121203
  Receipt Date: 20121205
  Transmission Date: 20130627
  Serious: Yes (Hospitalization, Other)
  Sender: FDA-Public Use
  Company Number: CA-JNJFOC-20121111288

PATIENT
  Age: 64 Year
  Sex: Female
  Weight: 65.77 kg

DRUGS (4)
  1. REMICADE [Suspect]
     Indication: CROHN^S DISEASE
     Route: 042
     Dates: start: 20120510, end: 20120510
  2. REMICADE [Suspect]
     Indication: CROHN^S DISEASE
     Route: 042
     Dates: start: 2011
  3. PREDNISONE [Suspect]
     Indication: ILEOSTOMY
     Route: 065
  4. ANTIBIOTICS UNSPECIFIED [Concomitant]
     Route: 065

REACTIONS (5)
  - Ileostomy [Unknown]
  - Arthropathy [Unknown]
  - Infusion related reaction [Unknown]
  - Erythema [Unknown]
  - Inflammation [Unknown]
